FAERS Safety Report 19845614 (Version 1)
Quarter: 2021Q3

REPORT INFORMATION
  Report Type: Report from Study
  Country: ZA (occurrence: ZA)
  Receive Date: 20210917
  Receipt Date: 20210917
  Transmission Date: 20211014
  Serious: Yes (Hospitalization, Other)
  Sender: FDA-Public Use
  Company Number: ZA-SA-2020SA236409

PATIENT
  Age: 49 Year
  Sex: Female

DRUGS (2)
  1. TERIFLUNOMIDE. [Suspect]
     Active Substance: TERIFLUNOMIDE
     Dosage: 14 MG, QD
     Route: 048
     Dates: start: 20190620
  2. TERIFLUNOMIDE. [Suspect]
     Active Substance: TERIFLUNOMIDE
     Indication: RELAPSING-REMITTING MULTIPLE SCLEROSIS
     Dosage: 14 MG, QD
     Route: 048
     Dates: start: 20190624

REACTIONS (17)
  - Myelitis transverse [Unknown]
  - Muscle spasms [Unknown]
  - Pain [Unknown]
  - Romberg test positive [Unknown]
  - Drug ineffective [Unknown]
  - Urinary incontinence [Recovering/Resolving]
  - Hypertonia [Unknown]
  - Impaired work ability [Unknown]
  - Fatigue [Unknown]
  - Hyperpathia [Unknown]
  - Hypoaesthesia [Unknown]
  - Impaired driving ability [Recovering/Resolving]
  - Ataxia [Unknown]
  - Multiple sclerosis relapse [Unknown]
  - Pain in extremity [Recovering/Resolving]
  - Sensory loss [Unknown]
  - Paraesthesia [Recovering/Resolving]

NARRATIVE: CASE EVENT DATE: 2020
